FAERS Safety Report 23109643 (Version 2)
Quarter: 2023Q4

REPORT INFORMATION
  Report Type: Report from Study
  Country: JP (occurrence: JP)
  Receive Date: 20231026
  Receipt Date: 20231121
  Transmission Date: 20240110
  Serious: No
  Sender: FDA-Public Use
  Company Number: JP-BIOGEN-2023BI01232073

PATIENT
  Age: 79 Year
  Sex: Male
  Weight: 55.8 kg

DRUGS (7)
  1. ADUCANUMAB [Suspect]
     Active Substance: ADUCANUMAB
     Indication: Dementia Alzheimer^s type
     Dosage: TITRATION PERIOD
     Route: 050
     Dates: start: 20230711, end: 20230711
  2. ADUCANUMAB [Suspect]
     Active Substance: ADUCANUMAB
     Dosage: TITRATION PERIOD
     Route: 050
     Dates: start: 20230808, end: 20230808
  3. ADUCANUMAB [Suspect]
     Active Substance: ADUCANUMAB
     Dosage: TITRATION PERIOD
     Route: 050
     Dates: start: 20230904, end: 20230904
  4. ADUCANUMAB [Suspect]
     Active Substance: ADUCANUMAB
     Dosage: TITRATION PERIOD
     Route: 050
     Dates: start: 20231002, end: 20231002
  5. FLORQUINITAU [Suspect]
     Active Substance: FLORQUINITAU
     Indication: Positron emission tomogram
     Route: 050
     Dates: start: 20230705, end: 20230705
  6. DONEPEZIL HYDROCHLORIDE [Concomitant]
     Active Substance: DONEPEZIL HYDROCHLORIDE
     Route: 050
     Dates: start: 20210503
  7. NAFTOPIDIL [Concomitant]
     Active Substance: NAFTOPIDIL
     Route: 050
     Dates: start: 20100105

REACTIONS (2)
  - Amyloid related imaging abnormality-oedema/effusion [Recovered/Resolved]
  - Superficial siderosis of central nervous system [Recovered/Resolved]

NARRATIVE: CASE EVENT DATE: 20231019
